FAERS Safety Report 21253406 (Version 4)
Quarter: 2025Q1

REPORT INFORMATION
  Report Type: Spontaneous
  Country: US (occurrence: US)
  Receive Date: 20220825
  Receipt Date: 20250110
  Transmission Date: 20250408
  Serious: No
  Sender: PFIZER
  Company Number: US-PFIZER INC-PV202200049738

PATIENT
  Age: 56 Year
  Sex: Female

DRUGS (1)
  1. XELJANZ XR [Suspect]
     Active Substance: TOFACITINIB CITRATE
     Indication: Arthritis
     Dosage: 11 MG, 1X/DAY, 1 TABLET DAILY
     Route: 048

REACTIONS (9)
  - Pain [Unknown]
  - Back pain [Unknown]
  - Arthralgia [Unknown]
  - Hypoaesthesia [Unknown]
  - Paraesthesia [Unknown]
  - Osteoarthritis [Unknown]
  - Inflammatory pain [Unknown]
  - Off label use [Unknown]
  - Muscle disorder [Unknown]
